FAERS Safety Report 12635203 (Version 1)
Quarter: 2016Q3

REPORT INFORMATION
  Report Type: Report from Study
  Country: BR (occurrence: BR)
  Receive Date: 20160809
  Receipt Date: 20160809
  Transmission Date: 20161109
  Serious: Yes (Other)
  Sender: FDA-Public Use
  Company Number: PHHY2016BR107825

PATIENT
  Sex: Male
  Weight: 27.3 kg

DRUGS (1)
  1. EXJADE [Suspect]
     Active Substance: DEFERASIROX
     Indication: SICKLE CELL ANAEMIA
     Dosage: 1 DF OF 500 MG AND 1 DF OF 250 MG (30 MG/KG), QD
     Route: 048

REACTIONS (3)
  - Headache [Unknown]
  - Serum ferritin increased [Unknown]
  - Growth retardation [Unknown]
